FAERS Safety Report 21692489 (Version 1)
Quarter: 2022Q4

REPORT INFORMATION
  Report Type: Report from Study
  Country: US (occurrence: US)
  Receive Date: 20221207
  Receipt Date: 20221207
  Transmission Date: 20230113
  Serious: No
  Sender: FDA-Public Use
  Company Number: US-ABBVIE-4222696

PATIENT
  Age: 65 Year
  Sex: Male
  Weight: 117.93 kg

DRUGS (2)
  1. DUOPA [Suspect]
     Active Substance: CARBIDOPA\LEVODOPA
     Indication: Product used for unknown indication
     Route: 050
     Dates: start: 20180710
  2. DUOPA [Suspect]
     Active Substance: CARBIDOPA\LEVODOPA

REACTIONS (5)
  - Stoma site pain [Not Recovered/Not Resolved]
  - Medical device site mass [Not Recovered/Not Resolved]
  - Stoma site reaction [Unknown]
  - Device issue [Not Recovered/Not Resolved]
  - Stoma site oedema [Not Recovered/Not Resolved]

NARRATIVE: CASE EVENT DATE: 20221201
